FAERS Safety Report 26008575 (Version 1)
Quarter: 2025Q4

REPORT INFORMATION
  Report Type: Spontaneous
  Country: IN (occurrence: IN)
  Receive Date: 20251106
  Receipt Date: 20251106
  Transmission Date: 20260118
  Serious: Yes (Other)
  Sender: INCYTE
  Company Number: IN-002147023-NVSC2025IN170393

PATIENT

DRUGS (1)
  1. RUXOLITINIB [Suspect]
     Active Substance: RUXOLITINIB
     Indication: Myelofibrosis
     Dosage: 5 MG, BID

REACTIONS (2)
  - Myelodysplastic syndrome [Unknown]
  - Off label use [Unknown]
